FAERS Safety Report 11569306 (Version 1)
Quarter: 2015Q3

REPORT INFORMATION
  Report Type: Spontaneous
  Country: US (occurrence: None)
  Receive Date: 20150928
  Receipt Date: 20150928
  Transmission Date: 20151125
  Serious: No
  Sender: FDA-Public Use
  Company Number: None

PATIENT
  Age: 42 Year
  Sex: Female
  Weight: 55.79 kg

DRUGS (5)
  1. MIRENA [Suspect]
     Active Substance: LEVONORGESTREL
     Indication: CONTRACEPTION
     Dates: start: 20150924, end: 20150925
  2. NASINEX [Concomitant]
  3. CENTRUM WOMEN^S [Concomitant]
  4. CLONAPIN [Concomitant]
     Active Substance: CLONAZEPAM
  5. ADDERALL [Concomitant]
     Active Substance: AMPHETAMINE ASPARTATE\AMPHETAMINE SULFATE\DEXTROAMPHETAMINE SACCHARATE\DEXTROAMPHETAMINE SULFATE

REACTIONS (4)
  - Abdominal distension [None]
  - Pyrexia [None]
  - Abdominal pain [None]
  - Panic attack [None]

NARRATIVE: CASE EVENT DATE: 20150924
